FAERS Safety Report 10415530 (Version 1)
Quarter: 2014Q3

REPORT INFORMATION
  Report Type: Spontaneous
  Country: US (occurrence: US)
  Receive Date: 20140828
  Receipt Date: 20140828
  Transmission Date: 20150326
  Serious: Yes (Death, Other)
  Sender: FDA-Public Use
  Company Number: US-UCBSA-2014009644

PATIENT
  Sex: Male
  Weight: 72.5 kg

DRUGS (1)
  1. CIMZIA [Suspect]
     Active Substance: CERTOLIZUMAB PEGOL
     Indication: CROHN^S DISEASE
     Dosage: 400 MG, EV 4 WEEKS
     Route: 058
     Dates: start: 20090217, end: 20140815

REACTIONS (4)
  - Platelet count decreased [Recovered/Resolved]
  - Renal failure [Fatal]
  - Thrombosis [Unknown]
  - Immunodeficiency [Fatal]

NARRATIVE: CASE EVENT DATE: 2014
